FAERS Safety Report 7347874-2 (Version None)
Quarter: 2011Q1

REPORT INFORMATION
  Report Type: 
  Country: None (occurrence: None)
  Receive Date: 20110311
  Receipt Date: 20110302
  Transmission Date: 20110831
  Serious: Yes (Other)
  Sender: FDA-Public Use
  Company Number: US-JNJFOC-20110302950

PATIENT
  Age: 51 Year
  Sex: Male
  Weight: 101.61 kg

DRUGS (1)
  1. STELARA [Suspect]
     Indication: PSORIASIS
     Route: 058

REACTIONS (2)
  - GRANULOMA [None]
  - HEPATIC ENZYME INCREASED [None]
